FAERS Safety Report 17545642 (Version 1)
Quarter: 2020Q1

REPORT INFORMATION
  Report Type: Report from Study
  Country: CO (occurrence: CO)
  Receive Date: 20200316
  Receipt Date: 20200316
  Transmission Date: 20200409
  Serious: Yes (Other)
  Sender: FDA-Public Use
  Company Number: CO-ROCHE-2537625

PATIENT
  Sex: Female

DRUGS (2)
  1. ACTEMRA [Suspect]
     Active Substance: TOCILIZUMAB
     Indication: PRODUCT USED FOR UNKNOWN INDICATION
     Route: 065
  2. MABTHERA [Suspect]
     Active Substance: RITUXIMAB
     Indication: PRODUCT USED FOR UNKNOWN INDICATION
     Route: 065

REACTIONS (15)
  - Painful respiration [Unknown]
  - Pain in extremity [Recovered/Resolved]
  - Back pain [Unknown]
  - Chest pain [Unknown]
  - Asthenia [Unknown]
  - Chest discomfort [Unknown]
  - Malaise [Unknown]
  - Feeling abnormal [Unknown]
  - Inflammation [Unknown]
  - Insomnia [Recovered/Resolved]
  - Blood pressure increased [Unknown]
  - Chondropathy [Unknown]
  - Pneumonia [Unknown]
  - Bone swelling [Unknown]
  - Tachycardia [Unknown]
